FAERS Safety Report 9404327 (Version 1)
Quarter: 2013Q3

REPORT INFORMATION
  Report Type: Spontaneous
  Country: US (occurrence: None)
  Receive Date: 20130711
  Receipt Date: 20130711
  Transmission Date: 20140515
  Serious: Yes (Hospitalization)
  Sender: FDA-Public Use
  Company Number: UTC-034439

PATIENT
  Age: 69 Year
  Sex: Female
  Weight: 46.8 kg

DRUGS (7)
  1. TREPROSTINIL [Suspect]
     Indication: PULMONARY ARTERIAL HYPERTENSION
     Dosage: 216 MCG?
     Dates: start: 20100404
  2. REVATIO [Suspect]
     Indication: PULMONARY ARTERIAL HYPERTENSION
     Dosage: 120 MG?
     Route: 048
     Dates: start: 20050826
  3. TRACLEER [Suspect]
     Indication: PULMONARY ARTERIAL HYPERTENSION
     Dosage: 125 MG
     Dates: start: 20080710
  4. WARFARIN (UNKNOWN) [Concomitant]
  5. SPIRONOLACTONE (TABLET) [Concomitant]
  6. DIGOXIN (TABLET) [Concomitant]
  7. METOPROLOL TARTRATE (25 MILLIGRAM, TABLET) [Concomitant]

REACTIONS (13)
  - Respiratory failure [None]
  - Hypoxia [None]
  - Oedema peripheral [None]
  - Weight increased [None]
  - Mental status changes [None]
  - Somnolence [None]
  - Respiratory acidosis [None]
  - Pneumonia [None]
  - Fluid overload [None]
  - Hypoventilation [None]
  - Diaphragmatic disorder [None]
  - Vasodilatation [None]
  - Cardiac disorder [None]
